FAERS Safety Report 25132245 (Version 7)
Quarter: 2025Q4

REPORT INFORMATION
  Report Type: Report from Study
  Country: US (occurrence: US)
  Receive Date: 20250328
  Receipt Date: 20251121
  Transmission Date: 20260118
  Serious: Yes (Other)
  Sender: NOVARTIS
  Company Number: US-002147023-NVSC2025US050852

PATIENT
  Sex: Female
  Weight: 106.14 kg

DRUGS (4)
  1. COSENTYX [Suspect]
     Active Substance: SECUKINUMAB
     Indication: Hidradenitis
     Dosage: 300 MG/KG, QMO
     Route: 058
     Dates: start: 20250215, end: 20250219
  2. COSENTYX [Suspect]
     Active Substance: SECUKINUMAB
     Dosage: UNK, Q2W
     Route: 065
     Dates: start: 20250805
  3. COSENTYX [Suspect]
     Active Substance: SECUKINUMAB
     Dosage: UNK, Q4W
     Route: 065
  4. COSENTYX [Suspect]
     Active Substance: SECUKINUMAB
     Dosage: UNK, Q2W (TWICE A MONTH)
     Route: 065

REACTIONS (8)
  - Pneumonia [Unknown]
  - Malaise [Unknown]
  - Dyspnoea [Unknown]
  - Chest pain [Unknown]
  - Bronchitis [Unknown]
  - Rash [Unknown]
  - Hidradenitis [Unknown]
  - Condition aggravated [Unknown]
